FAERS Safety Report 20052879 (Version 1)
Quarter: 2021Q4

REPORT INFORMATION
  Report Type: Spontaneous
  Country: US (occurrence: None)
  Receive Date: 20211109
  Receipt Date: 20211109
  Transmission Date: 20220303
  Serious: Yes (Life-Threatening, Disabling, Other)
  Sender: FDA-Public Use
  Company Number: None

PATIENT
  Age: 39 Year
  Sex: Female
  Weight: 83.25 kg

DRUGS (2)
  1. CYMBALTA [Suspect]
     Active Substance: DULOXETINE HYDROCHLORIDE
     Indication: Depression
     Dosage: FREQUENCY : TWICE A DAY;?
     Route: 048
     Dates: start: 20191201, end: 20200210
  2. CYMBALTA [Suspect]
     Active Substance: DULOXETINE HYDROCHLORIDE
     Indication: Pain

REACTIONS (12)
  - Movement disorder [None]
  - Tardive dyskinesia [None]
  - Hot flush [None]
  - Vomiting [None]
  - Diarrhoea [None]
  - Vision blurred [None]
  - Cerebral disorder [None]
  - Mental disorder [None]
  - Emotional disorder [None]
  - Amenorrhoea [None]
  - Hyperhidrosis [None]
  - Loss of personal independence in daily activities [None]

NARRATIVE: CASE EVENT DATE: 20210215
